FAERS Safety Report 10533482 (Version 1)
Quarter: 2014Q4

REPORT INFORMATION
  Report Type: Spontaneous
  Country: CN (occurrence: CN)
  Receive Date: 20141022
  Receipt Date: 20141022
  Transmission Date: 20150529
  Serious: Yes (Hospitalization, Disabling)
  Sender: FDA-Public Use
  Company Number: PHHY2014CN137762

PATIENT
  Age: 51 Year
  Sex: Female
  Weight: 55 kg

DRUGS (6)
  1. BISOPROLOL [Concomitant]
     Active Substance: BISOPROLOL
     Indication: HYPERLIPIDAEMIA
     Dosage: 0.5 UKN, QD
     Route: 065
     Dates: start: 20131118, end: 20131213
  2. LESCOL [Suspect]
     Active Substance: FLUVASTATIN SODIUM
     Indication: CORONARY ARTERY DISEASE
     Dosage: 1 DF, QD
     Route: 048
     Dates: start: 20131118, end: 20131213
  3. BISOPROLOL [Concomitant]
     Active Substance: BISOPROLOL
     Indication: CORONARY ARTERY DISEASE
     Route: 065
  4. TRIMETAZIDINE [Concomitant]
     Active Substance: TRIMETAZIDINE
     Indication: HYPERLIPIDAEMIA
     Dosage: 1 DF, TID
     Route: 048
     Dates: start: 20131118, end: 20131213
  5. LESCOL [Suspect]
     Active Substance: FLUVASTATIN SODIUM
     Dosage: UKN
  6. TRIMETAZIDINE [Concomitant]
     Active Substance: TRIMETAZIDINE
     Indication: CORONARY ARTERY DISEASE
     Dosage: UNK
     Route: 065

REACTIONS (1)
  - Liver function test abnormal [Recovering/Resolving]

NARRATIVE: CASE EVENT DATE: 20131213
